FAERS Safety Report 10283994 (Version 1)
Quarter: 2014Q3

REPORT INFORMATION
  Report Type: Spontaneous
  Country: CH (occurrence: CH)
  Receive Date: 20140708
  Receipt Date: 20140708
  Transmission Date: 20150326
  Serious: Yes (Hospitalization)
  Sender: FDA-Public Use
  Company Number: CH-PFIZER INC-2014188869

PATIENT
  Age: 39 Year
  Sex: Female
  Weight: 43 kg

DRUGS (5)
  1. XARELTO [Suspect]
     Active Substance: RIVAROXABAN
     Indication: PULMONARY EMBOLISM
     Dosage: 1 DF, 1X/DAY
     Route: 048
     Dates: start: 2012, end: 20140519
  2. PANTOZOL [Suspect]
     Active Substance: PANTOPRAZOLE SODIUM
     Dosage: 1 DF, 1 PER 1 AS NECESSARY
     Route: 048
     Dates: end: 20140519
  3. EUTHYROX [Suspect]
     Active Substance: LEVOTHYROXINE SODIUM
     Indication: AUTOIMMUNE THYROIDITIS
     Dosage: 0.75 UG, 1X/DAY
     Route: 048
     Dates: end: 20140520
  4. MAGNESIUM [Concomitant]
     Active Substance: MAGNESIUM
     Dosage: UNK
  5. DULCOLAX [Concomitant]
     Active Substance: BISACODYL OR DOCUSATE SODIUM
     Dosage: UNK

REACTIONS (4)
  - Eosinophilia [Recovering/Resolving]
  - Jaundice [Recovering/Resolving]
  - Mixed liver injury [Recovering/Resolving]
  - Hyperthyroidism [Unknown]

NARRATIVE: CASE EVENT DATE: 20130520
